FAERS Safety Report 12250026 (Version 1)
Quarter: 2016Q2

REPORT INFORMATION
  Report Type: Report from Study
  Country: CN (occurrence: CN)
  Receive Date: 20160408
  Receipt Date: 20160408
  Transmission Date: 20160815
  Serious: Yes (Hospitalization, Other)
  Sender: FDA-Public Use
  Company Number: CN-ASTRAZENECA-2016SE36860

PATIENT
  Age: 23769 Day
  Sex: Male
  Weight: 74.9 kg

DRUGS (9)
  1. INSULIN ASPART [Concomitant]
     Active Substance: INSULIN ASPART
  2. LEVAMLODIPINE [Concomitant]
     Active Substance: LEVAMLODIPINE
  3. ACARBOSE. [Concomitant]
     Active Substance: ACARBOSE
  4. ROSUVASTATIN CALCIUM. [Concomitant]
     Active Substance: ROSUVASTATIN CALCIUM
  5. BRILINTA [Suspect]
     Active Substance: TICAGRELOR
     Indication: ACUTE CORONARY SYNDROME
     Route: 048
     Dates: start: 20151126
  6. ASPIRIN. [Concomitant]
     Active Substance: ASPIRIN
  7. PERINDOPRIL [Concomitant]
     Active Substance: PERINDOPRIL
  8. NICORANDIL [Concomitant]
     Active Substance: NICORANDIL
  9. METOPROLOL. [Concomitant]
     Active Substance: METOPROLOL

REACTIONS (1)
  - Myocardial infarction [Recovered/Resolved]

NARRATIVE: CASE EVENT DATE: 20160105
